FAERS Safety Report 6537318-2 (Version None)
Quarter: 2010Q1

REPORT INFORMATION
  Report Type: 
  Country: None (occurrence: None)
  Receive Date: 20100114
  Receipt Date: 20100106
  Transmission Date: 20100710
  Serious: Yes (Death)
  Sender: FDA-Public Use
  Company Number: US-WYE-H12115209

PATIENT
  Sex: Male

DRUGS (15)
  1. EFFEXOR XR [Suspect]
     Indication: DEPRESSION
     Route: 048
     Dates: start: 20081212, end: 20081223
  2. EFFEXOR XR [Suspect]
     Indication: GENERALISED ANXIETY DISORDER
     Route: 048
     Dates: start: 20081227, end: 20081228
  3. EFFEXOR XR [Suspect]
     Route: 048
     Dates: start: 20081229, end: 20081229
  4. METOPROLOL [Concomitant]
     Dosage: 50 MG, FREQUENCY NOT SPECIFIED
  5. PLAVIX [Concomitant]
     Dosage: 75 MG, FREQUENCY NOT SPECIFIED
  6. ASPIRIN [Concomitant]
     Dosage: 81 MG, FREQUENCY NOT SPECIFIED
  7. MIRTAZAPINE [Concomitant]
     Route: 048
     Dates: end: 20081201
  8. MIRTAZAPINE [Concomitant]
     Dosage: ^1/2 TAB^
     Route: 048
     Dates: start: 20081201
  9. POTASSIUM [Concomitant]
     Dosage: UNKNOWN
  10. NIASPAN [Concomitant]
     Dosage: UNKNOWN
  11. ZEGERID [Concomitant]
     Dosage: UNKNOWN
  12. TESTOSTERONE [Concomitant]
     Indication: BLOOD TESTOSTERONE DECREASED
     Dosage: ^INJECTIONS^
     Dates: start: 20080101
  13. VITAMIN D3 [Concomitant]
     Indication: VITAMIN D DEFICIENCY
     Dates: start: 20080101
  14. CRESTOR [Concomitant]
     Dosage: 10 MG, FREQUENCY NOT SPECIFIED
  15. DIOVAN [Concomitant]
     Dosage: UNKNOWN

REACTIONS (11)
  - AKATHISIA [None]
  - ANXIETY [None]
  - COMPLETED SUICIDE [None]
  - CONDITION AGGRAVATED [None]
  - DRUG INEFFECTIVE [None]
  - FEELING ABNORMAL [None]
  - GUN SHOT WOUND [None]
  - RASH [None]
  - RESTLESSNESS [None]
  - TREMOR [None]
  - WEIGHT DECREASED [None]
